FAERS Safety Report 8337736-6 (Version None)
Quarter: 2012Q2

REPORT INFORMATION
  Report Type: 
  Country: None (occurrence: None)
  Receive Date: 20120504
  Receipt Date: 20120422
  Transmission Date: 20120825
  Serious: Yes (Other)
  Sender: FDA-Public Use
  Company Number: US-JNJFOC-20120410712

PATIENT

DRUGS (1)
  1. RISPERDAL [Suspect]
     Indication: PRODUCT USED FOR UNKNOWN INDICATION
     Route: 065
     Dates: start: 19980101, end: 20050101

REACTIONS (5)
  - GLUCOSE TOLERANCE IMPAIRED [None]
  - BLOOD PROLACTIN INCREASED [None]
  - WEIGHT INCREASED [None]
  - ADENOMA BENIGN [None]
  - GALACTORRHOEA [None]
